FAERS Safety Report 24986251 (Version 1)
Quarter: 2025Q1

REPORT INFORMATION
  Report Type: Report from Study
  Country: US (occurrence: US)
  Receive Date: 20250219
  Receipt Date: 20250219
  Transmission Date: 20250409
  Serious: Yes (Other)
  Sender: ARGENX BVBA
  Company Number: US-ARGENX-2025-ARGX-US001949

PATIENT

DRUGS (1)
  1. EFGARTIGIMOD ALFA-FCAB [Suspect]
     Active Substance: EFGARTIGIMOD ALFA-FCAB
     Indication: Myasthenia gravis
     Route: 042

REACTIONS (4)
  - Wheezing [Unknown]
  - Throat irritation [Unknown]
  - Dysphonia [Unknown]
  - Dyspnoea [Unknown]

NARRATIVE: CASE EVENT DATE: 20250211
